FAERS Safety Report 6122935-4 (Version None)
Quarter: 2009Q1

REPORT INFORMATION
  Report Type: 
  Country: None (occurrence: None)
  Receive Date: 20090318
  Receipt Date: 20090310
  Transmission Date: 20090719
  Serious: Yes (Other)
  Sender: FDA-Public Use
  Company Number: PHHY2009BR09225

PATIENT
  Sex: Female
  Weight: 43 kg

DRUGS (2)
  1. DIOVAN AMLO FIX [Suspect]
     Indication: HYPERTENSION
     Dosage: 1 DF, QD
     Route: 048
     Dates: start: 20080901
  2. BUDESONIDE [Concomitant]
     Indication: INSOMNIA
     Dosage: 100 MG AT NIGHT
     Dates: start: 20081101

REACTIONS (11)
  - BLOOD PRESSURE INADEQUATELY CONTROLLED [None]
  - DEAFNESS [None]
  - DRY MOUTH [None]
  - EUSTACHIAN TUBE OBSTRUCTION [None]
  - HEADACHE [None]
  - HYPERPHAGIA [None]
  - MASTICATION DISORDER [None]
  - NASAL DRYNESS [None]
  - POLLAKIURIA [None]
  - STRESS [None]
  - WEIGHT DECREASED [None]
